FAERS Safety Report 5654864-4 (Version None)
Quarter: 2008Q1

REPORT INFORMATION
  Report Type: 
  Country: None (occurrence: None)
  Receive Date: 20080307
  Receipt Date: 20070816
  Transmission Date: 20080703
  Serious: No
  Sender: FDA-Public Use
  Company Number: A0671171A

PATIENT
  Age: 52 Year
  Sex: Female

DRUGS (11)
  1. REQUIP [Suspect]
     Dosage: 1MG PER DAY
     Route: 048
  2. SYNTHROID [Concomitant]
  3. NEXIUM [Concomitant]
  4. KEPPRA [Concomitant]
  5. TOPAMAX [Concomitant]
  6. TRAZODONE HCL [Concomitant]
  7. CENESTIN [Concomitant]
  8. CELEBREX [Concomitant]
  9. VITAMIN B-12 [Concomitant]
  10. COD LIVER OIL [Concomitant]
  11. VITAMIN E [Concomitant]

REACTIONS (2)
  - NAUSEA [None]
  - VOMITING [None]
